FAERS Safety Report 8412501-X (Version None)
Quarter: 2012Q2

REPORT INFORMATION
  Report Type: 
  Country: None (occurrence: None)
  Receive Date: 20120605
  Receipt Date: 20120521
  Transmission Date: 20120825
  Serious: No
  Sender: FDA-Public Use
  Company Number: US-AMGEN-USASP2012032189

PATIENT
  Sex: Female

DRUGS (4)
  1. ENBREL [Suspect]
     Indication: RHEUMATOID ARTHRITIS
     Dosage: 50 MG, QWK
     Dates: start: 20110601
  2. METHOTREXATE [Concomitant]
     Dosage: UNK MG, UNK
  3. LIDOCAINE                          /00033402/ [Concomitant]
     Dosage: 3-0.5% CREAM
  4. FOLIC ACID [Concomitant]
     Dosage: UNK MG, UNK

REACTIONS (3)
  - DRY SKIN [None]
  - RASH PRURITIC [None]
  - BLISTER [None]
